FAERS Safety Report 6985092-8 (Version None)
Quarter: 2010Q3

REPORT INFORMATION
  Report Type: 
  Country: None (occurrence: None)
  Receive Date: 20100915
  Receipt Date: 20100909
  Transmission Date: 20110219
  Serious: Yes (Life-Threatening, Other)
  Sender: FDA-Public Use
  Company Number: PHHY2010JP36749

PATIENT
  Sex: Female

DRUGS (3)
  1. DIOVAN [Suspect]
     Indication: HYPERTENSION
     Dosage: 80 MG, QD
     Route: 048
     Dates: start: 20100522
  2. GARENOXACIN [Suspect]
     Dosage: 200 MG, BID
     Route: 048
     Dates: start: 20100528
  3. ROCEPHIN [Concomitant]

REACTIONS (3)
  - ATRIOVENTRICULAR BLOCK [None]
  - CARDIAC PACEMAKER INSERTION [None]
  - HYPERKALAEMIA [None]
